FAERS Safety Report 8403257 (Version 2)
Quarter: 2012Q4

REPORT INFORMATION
  Report Type: 
  Country: BR (occurrence: BR)
  Receive Date: 20120213
  Receipt Date: 20120830
  Transmission Date: 20130627
  Serious: Yes (Death, Hospitalization)
  Sender: FDA-Public Use
  Company Number: PHHO2012BR001801

PATIENT
  Age: 52 Year
  Sex: Female
  Weight: 69.5 kg

DRUGS (12)
  1. ENALAPRIL [Suspect]
     Indication: CARDIAC FAILURE
     Dosage: UNK
     Route: 048
     Dates: start: 20111103
  2. ALISKIREN [Suspect]
     Indication: CARDIAC FAILURE
     Dosage: UNK
     Route: 048
     Dates: start: 20111018, end: 20111103
  3. ENALAPRIL [Suspect]
     Indication: CARDIAC FAILURE
     Dosage: UNK
     Route: 048
     Dates: start: 20110919, end: 20111103
  4. FUROSEMIDE [Concomitant]
     Indication: CARDIAC FAILURE
     Dosage: 40 mg, BID
     Route: 048
     Dates: start: 20110608, end: 20120509
  5. FUROSEMIDE [Concomitant]
     Dosage: 40 mg, TID
     Route: 048
     Dates: start: 20120510
  6. SPIRONOLACTONE [Concomitant]
     Indication: CARDIAC FAILURE
     Dosage: 25 mg, UNK
     Route: 048
     Dates: start: 20110804
  7. CARVEDILOL [Concomitant]
     Indication: CARDIAC FAILURE
     Dosage: 12.5 mg, BID
     Route: 048
     Dates: start: 20110608
  8. CARVEDILOL [Concomitant]
     Dosage: 25 mg, BID
     Route: 048
     Dates: start: 20111205, end: 20120509
  9. LEVOTHYROXINE [Concomitant]
     Dosage: 75 ug, UNK
     Route: 048
     Dates: start: 20080808
  10. DIGOXINE [Concomitant]
     Indication: CARDIAC FAILURE
     Dosage: 0.25 mg, UNK
     Route: 048
     Dates: start: 20110608
  11. WARFARIN [Concomitant]
     Dosage: 5 mg, UNK
     Route: 048
     Dates: start: 20110608
  12. ATORVASTATIN [Concomitant]
     Dosage: 20 mg, UNK
     Route: 048
     Dates: start: 20110608

REACTIONS (2)
  - Cardiac failure [Recovered/Resolved]
  - Cardiogenic shock [Fatal]
